FAERS Safety Report 8800305 (Version 3)
Quarter: 2012Q4

REPORT INFORMATION
  Report Type: 
  Country: US (occurrence: US)
  Receive Date: 20120921
  Receipt Date: 20121010
  Transmission Date: 20130627
  Serious: Yes (Disabling, Other)
  Sender: FDA-Public Use
  Company Number: CHPA2012US019867

PATIENT
  Age: 82 Year
  Sex: Female

DRUGS (2)
  1. KERI ADVANCED [Suspect]
     Indication: DRY SKIN
     Dosage: Applied to her entire body, daily
     Route: 061
  2. DESITIN MAXIMUM STRENGTH ORIGINAL [Concomitant]
     Dosage: UNK, UNK
     Route: 061

REACTIONS (5)
  - Neuropathy peripheral [Not Recovered/Not Resolved]
  - Skin ulcer [Recovered/Resolved]
  - Arthritis [Not Recovered/Not Resolved]
  - Product quality issue [None]
  - Device failure [None]
